FAERS Safety Report 14188331 (Version 4)
Quarter: 2018Q1

REPORT INFORMATION
  Report Type: Spontaneous
  Country: JP (occurrence: JP)
  Receive Date: 20171114
  Receipt Date: 20180214
  Transmission Date: 20180508
  Serious: Yes (Hospitalization, Other)
  Sender: FDA-Public Use
  Company Number: JP-OTSUKA-2017_024567

PATIENT
  Age: 68 Year
  Sex: Male

DRUGS (6)
  1. SAMSCA [Suspect]
     Active Substance: TOLVAPTAN
     Indication: CARDIAC FAILURE CONGESTIVE
     Dosage: 11.25 MG, QD
     Route: 048
     Dates: start: 20171102, end: 20171106
  2. AMIODARONE HYDROCHLORIDE. [Suspect]
     Active Substance: AMIODARONE HYDROCHLORIDE
     Indication: PRODUCT USED FOR UNKNOWN INDICATION
     Dosage: 100 MG, QD
     Route: 048
     Dates: start: 20130319, end: 20171024
  3. ELIQUIS [Suspect]
     Active Substance: APIXABAN
     Indication: PRODUCT USED FOR UNKNOWN INDICATION
     Dosage: 10 MG, QD
     Route: 048
     Dates: start: 20140227, end: 20171106
  4. SAMSCA [Suspect]
     Active Substance: TOLVAPTAN
     Dosage: 3.75 MG, QD
     Route: 048
     Dates: start: 20171107
  5. SAMSCA [Suspect]
     Active Substance: TOLVAPTAN
     Dosage: 7.5 MG, QD
     Route: 048
     Dates: start: 20171025, end: 20171102
  6. SAMSCA [Suspect]
     Active Substance: TOLVAPTAN
     Dosage: 3.75 MG, QD
     Route: 048
     Dates: start: 20171024, end: 20171024

REACTIONS (1)
  - Interstitial lung disease [Recovered/Resolved]

NARRATIVE: CASE EVENT DATE: 20171106
